FAERS Safety Report 10101747 (Version 3)
Quarter: 2014Q2

REPORT INFORMATION
  Report Type: Spontaneous
  Country: US (occurrence: DE)
  Receive Date: 20140424
  Receipt Date: 20140616
  Transmission Date: 20141212
  Serious: Yes (Life-Threatening)
  Sender: FDA-Public Use
  Company Number: DE-FRI-1000066771

PATIENT
  Age: 73 Year
  Sex: Male
  Weight: 80 kg

DRUGS (8)
  1. ROFLUMILAST [Suspect]
     Indication: CHRONIC OBSTRUCTIVE PULMONARY DISEASE
     Dosage: 500 MCG
     Route: 048
     Dates: start: 20131219, end: 20140528
  2. SPIRO COMP [Concomitant]
     Dates: start: 2012
  3. AMLODIPINE [Concomitant]
     Dates: start: 2012
  4. BLOPRESS [Concomitant]
     Dates: start: 2012
  5. SPIRIVA [Concomitant]
     Dates: start: 2012
  6. TORASEMIDE [Concomitant]
     Dates: start: 2012
  7. BISOPROLOL [Concomitant]
     Dates: start: 2012
  8. ADENURIC [Concomitant]
     Dates: start: 2012

REACTIONS (7)
  - Ureteric stenosis [Unknown]
  - Renal failure acute [Recovered/Resolved]
  - Restlessness [Recovering/Resolving]
  - Nausea [Recovering/Resolving]
  - Weight decreased [Recovering/Resolving]
  - Decreased appetite [Recovering/Resolving]
  - Insomnia [Recovering/Resolving]
